FAERS Safety Report 23056232 (Version 1)
Quarter: 2023Q4

REPORT INFORMATION
  Report Type: Other
  Country: None (occurrence: US)
  Receive Date: 20231011
  Receipt Date: 20231011
  Transmission Date: 20240110
  Serious: Yes (Hospitalization, Other)
  Sender: FDA-Public Use
  Company Number: US-MLMSERVICE20230925-4559651-1

PATIENT
  Age: 42 Year
  Sex: Male
  Weight: 125 kg

DRUGS (3)
  1. NITROGEN [Suspect]
     Active Substance: NITROGEN
     Indication: Skin papilloma
     Route: 061
  2. EPINEPHRINE\LIDOCAINE HYDROCHLORIDE [Suspect]
     Active Substance: EPINEPHRINE\LIDOCAINE HYDROCHLORIDE
     Route: 058
  3. LISINOPRIL [Concomitant]
     Active Substance: LISINOPRIL
     Route: 065

REACTIONS (4)
  - Extremity necrosis [Recovered/Resolved]
  - Dry gangrene [Recovered/Resolved]
  - Injection site reaction [Recovered/Resolved]
  - Drug interaction [Recovered/Resolved]
